FAERS Safety Report 9105868 (Version 1)
Quarter: 2013Q1

REPORT INFORMATION
  Report Type: Spontaneous
  Country: US (occurrence: US)
  Receive Date: 20130220
  Receipt Date: 20130220
  Transmission Date: 20140127
  Serious: No
  Sender: FDA-Public Use
  Company Number: US-PFIZER INC-2013060705

PATIENT
  Age: 21 Year
  Sex: Female
  Weight: 116.1 kg

DRUGS (5)
  1. ZOLOFT [Suspect]
     Indication: DEPRESSION
     Dosage: 50 MG, 1X/DAY
     Route: 048
     Dates: start: 20130118, end: 201302
  2. ZOLOFT [Suspect]
     Indication: ANXIETY
  3. VISTARIL [Concomitant]
     Dosage: UNK
  4. MIRTAZAPINE [Concomitant]
     Indication: SLEEP DISORDER
     Dosage: UNK
  5. DIPHENHYDRAMINE [Concomitant]
     Indication: HYPERSENSITIVITY
     Dosage: 25 MG, 2X/DAY

REACTIONS (4)
  - Attention deficit/hyperactivity disorder [Recovering/Resolving]
  - Disturbance in attention [Recovering/Resolving]
  - Emotional disorder [Recovering/Resolving]
  - Depression [Recovering/Resolving]
